FAERS Safety Report 25145908 (Version 1)
Quarter: 2025Q2

REPORT INFORMATION
  Report Type: Spontaneous
  Country: US (occurrence: US)
  Receive Date: 20250401
  Receipt Date: 20250401
  Transmission Date: 20250717
  Serious: No
  Sender: INNOGENIX
  Company Number: US-Innogenix, LLC-2174020

PATIENT

DRUGS (4)
  1. PROPRANOLOL HYDROCHLORIDE [Suspect]
     Active Substance: PROPRANOLOL HYDROCHLORIDE
     Indication: Product used for unknown indication
  2. VYVANSE [Suspect]
     Active Substance: LISDEXAMFETAMINE DIMESYLATE
  3. ATIVAN [Suspect]
     Active Substance: LORAZEPAM
  4. MEMANTINE [Suspect]
     Active Substance: MEMANTINE

REACTIONS (4)
  - Chest pain [Unknown]
  - Drug ineffective [Unknown]
  - Hypotension [Unknown]
  - Dyspnoea [Unknown]
